FAERS Safety Report 21850015 (Version 2)
Quarter: 2023Q1

REPORT INFORMATION
  Report Type: Spontaneous
  Country: US (occurrence: US)
  Receive Date: 20230111
  Receipt Date: 20230123
  Transmission Date: 20230418
  Serious: Yes (Hospitalization, Other)
  Sender: FDA-Public Use
  Company Number: US-MLMSERVICE-20221227-4005205-1

PATIENT
  Age: 23 Year
  Sex: Female
  Weight: 62 kg

DRUGS (7)
  1. TACROLIMUS [Suspect]
     Active Substance: TACROLIMUS
     Indication: Immunosuppressant drug therapy
     Dosage: UNK (FIVE YEARS PRIOR, TARGET LEVEL OF TACROLIMUS WAS INCREASED)
     Route: 065
  2. TACROLIMUS [Suspect]
     Active Substance: TACROLIMUS
     Dosage: UNK (AT THE TIME OF THE INDEX CLINIC, TARGET GOAL OF 4 TO 6 MG/DL)
     Route: 065
  3. TACROLIMUS [Suspect]
     Active Substance: TACROLIMUS
     Dosage: UNK
     Route: 065
  4. TACROLIMUS [Suspect]
     Active Substance: TACROLIMUS
     Dosage: 1 MILLIGRAM EVERY 12 HOURS
     Route: 065
  5. MYCOPHENOLIC ACID [Suspect]
     Active Substance: MYCOPHENOLIC ACID
     Indication: Immunosuppressant drug therapy
     Dosage: 180 MILLIGRAM EVERY 12 HOURS
     Route: 065
  6. PREDNISONE [Suspect]
     Active Substance: PREDNISONE
     Indication: Immunosuppressant drug therapy
     Dosage: 5 MILLIGRAM, OD
     Route: 065
  7. MYFORTIC [Suspect]
     Active Substance: MYCOPHENOLATE SODIUM
     Indication: Immunosuppressant drug therapy
     Dosage: 180 MILLIGRAM EVERY 12 HOURS
     Route: 065
     Dates: end: 202102

REACTIONS (3)
  - Escherichia infection [Unknown]
  - Post transplant lymphoproliferative disorder [Recovered/Resolved]
  - COVID-19 [Unknown]
